FAERS Safety Report 15853613 (Version 1)
Quarter: 2019Q1

REPORT INFORMATION
  Report Type: Spontaneous
  Country: RO (occurrence: RO)
  Receive Date: 20190122
  Receipt Date: 20190122
  Transmission Date: 20190417
  Serious: Yes (Death)
  Sender: FDA-Public Use
  Company Number: RO-PFIZER INC-2019028328

PATIENT
  Age: 68 Year
  Sex: Male
  Weight: 45 kg

DRUGS (7)
  1. DEXAMETHASONE. [Concomitant]
     Active Substance: DEXAMETHASONE
     Dosage: VIALS, 1X/DAY EVENING
  2. METOCLOPRAMID [METOCLOPRAMIDE] [Concomitant]
     Active Substance: METOCLOPRAMIDE
     Dosage: VIALS, 1X/DAY EVENING
  3. GLUCOSE [Concomitant]
     Active Substance: DEXTROSE
     Dosage: 10%X 500 ML, 1X/DAY EVENING
  4. KETONAL [KETOPROFEN] [Concomitant]
     Dosage: VIALS, 1X/DAY EVENING
  5. SUTENT [Suspect]
     Active Substance: SUNITINIB MALATE
     Indication: RENAL CANCER METASTATIC
     Dosage: 37.5 MG, CYCLIC, 28 DAYS ON TREATMENT WITH 14 DAYS PAUSE
     Dates: start: 20180710, end: 20190107
  6. ALGIFEN [FENPIVERINIUM BROMIDE;METAMIZOLE SODIUM MONOHYDRATE;PITOFENON [Concomitant]
     Dosage: VIALS, 1X/DAY EVENING
  7. ARNETIN [Concomitant]
     Dosage: VIALS, 1X/DAY EVENING

REACTIONS (1)
  - Death [Fatal]

NARRATIVE: CASE EVENT DATE: 20190107
